FAERS Safety Report 4817411-2 (Version None)
Quarter: 2005Q4

REPORT INFORMATION
  Report Type: 
  Country: None (occurrence: None)
  Receive Date: 20051031
  Receipt Date: 20051020
  Transmission Date: 20060501
  Serious: Yes (Hospitalization)
  Sender: FDA-Public Use
  Company Number: 2005145867

PATIENT
  Sex: Female

DRUGS (1)
  1. DOSTINEX [Suspect]
     Indication: PROLACTINOMA
     Dosage: 0.25 MG (0.25 MG, 2 IN 1 WK), ORAL
     Route: 048
     Dates: start: 20010101

REACTIONS (2)
  - CEREBELLAR HAEMORRHAGE [None]
  - HAEMORRHAGE INTRACRANIAL [None]
